FAERS Safety Report 20444637 (Version 4)
Quarter: 2022Q1

REPORT INFORMATION
  Report Type: Spontaneous
  Country: US (occurrence: None)
  Receive Date: 20220208
  Receipt Date: 20220322
  Transmission Date: 20220424
  Serious: Yes (Disabling, Other)
  Sender: FDA-Public Use
  Company Number: 2022A054308

PATIENT
  Age: 32294 Day
  Sex: Female
  Weight: 81.2 kg

DRUGS (16)
  1. FASENRA [Suspect]
     Active Substance: BENRALIZUMAB
     Indication: Asthma
     Dosage: 30.0MG/KG UNKNOWN
     Route: 058
     Dates: start: 20211224
  2. PULMICORT FLEXHALER [Concomitant]
     Active Substance: BUDESONIDE
     Indication: Asthma
     Route: 055
  3. WARFARIN [Concomitant]
     Active Substance: WARFARIN
  4. METOPROLOL [Concomitant]
     Active Substance: METOPROLOL
  5. FUROSEMIDE [Concomitant]
     Active Substance: FUROSEMIDE
  6. MAGNESIUM [Concomitant]
     Active Substance: MAGNESIUM
  7. CALCIUM [Concomitant]
     Active Substance: CALCIUM
  8. VITAMIN D [Concomitant]
     Active Substance: VITAMIN D NOS
  9. POTASSIUM [Concomitant]
     Active Substance: POTASSIUM
  10. ACIDOPHILUS [Concomitant]
     Active Substance: LACTOBACILLUS ACIDOPHILUS
  11. THEOPHYLLINE [Concomitant]
     Active Substance: THEOPHYLLINE
     Indication: Asthma
  12. XOPENEX [Concomitant]
     Active Substance: LEVALBUTEROL HYDROCHLORIDE
     Indication: Asthma
  13. ZAFIRLUKAST [Concomitant]
     Active Substance: ZAFIRLUKAST
     Indication: Asthma
  14. AZITHROMYCIN [Concomitant]
     Active Substance: AZITHROMYCIN
     Indication: Asthma
  15. PREDNISONE [Concomitant]
     Active Substance: PREDNISONE
     Indication: Asthma
  16. FLUCONAZOLE [Concomitant]
     Active Substance: FLUCONAZOLE
     Indication: Asthma

REACTIONS (8)
  - Fatigue [Recovered/Resolved]
  - Tremor [Recovered/Resolved]
  - Asthma [Not Recovered/Not Resolved]
  - Arthralgia [Recovered/Resolved]
  - Dyspnoea [Not Recovered/Not Resolved]
  - Wheezing [Not Recovered/Not Resolved]
  - Fluid retention [Unknown]
  - Eosinophil count increased [Unknown]

NARRATIVE: CASE EVENT DATE: 20211224
